FAERS Safety Report 5514596-X (Version None)
Quarter: 2007Q4

REPORT INFORMATION
  Report Type: 
  Country: None (occurrence: None)
  Receive Date: 20071113
  Receipt Date: 20071105
  Transmission Date: 20080405
  Serious: Yes (Hospitalization)
  Sender: FDA-Public Use
  Company Number: BE-ELI_LILLY_AND_COMPANY-BE200707004957

PATIENT
  Sex: Female

DRUGS (5)
  1. FORTEO [Suspect]
     Indication: OSTEOPOROSIS
     Dosage: 20 UG, DAILY (1/D)
     Route: 058
     Dates: start: 20060305, end: 20070706
  2. D-CURE [Concomitant]
     Indication: VITAMIN SUPPLEMENTATION
     Dosage: UNK, UNKNOWN
     Route: 048
  3. CALCIUM [Concomitant]
     Dosage: UNK, UNKNOWN
     Route: 048
  4. OXAZEPAM [Concomitant]
     Indication: DEPRESSION
     Dosage: UNK, UNKNOWN
     Route: 048
  5. TRAZOLAN [Concomitant]
     Indication: DEPRESSION
     Dosage: UNK, UNKNOWN
     Route: 048

REACTIONS (1)
  - ANTI-NEUTROPHIL CYTOPLASMIC ANTIBODY POSITIVE VASCULITIS [None]
